FAERS Safety Report 5623903-9 (Version None)
Quarter: 2008Q1

REPORT INFORMATION
  Report Type: 
  Country: None (occurrence: None)
  Receive Date: 20080207
  Receipt Date: 20080123
  Transmission Date: 20080703
  Serious: Yes (Hospitalization)
  Sender: FDA-Public Use
  Company Number: 6039934

PATIENT
  Age: 57 Year
  Sex: Female

DRUGS (2)
  1. DETENSIEL (10 MG, TABLET) (BISOPROLOL FUMARATE) [Suspect]
     Indication: HYPERTENSION
     Dosage: ORAL
     Route: 048
     Dates: start: 20050101, end: 20070903
  2. HYTACAND (TABLET) (HYDROCHLOROTHIAZIDE, CANDESARTAN CILEXETIL) [Suspect]
     Indication: HYPERTENSION
     Dosage: ORAL
     Route: 048
     Dates: start: 20050101, end: 20070827

REACTIONS (2)
  - PERICARDITIS [None]
  - SYSTEMIC LUPUS ERYTHEMATOSUS [None]
